FAERS Safety Report 26043483 (Version 1)
Quarter: 2025Q4

REPORT INFORMATION
  Report Type: Report from Study
  Country: US (occurrence: US)
  Receive Date: 20251113
  Receipt Date: 20251113
  Transmission Date: 20260118
  Serious: Yes (Hospitalization, Other)
  Sender: ABBVIE
  Company Number: US-ABBVIE-6542125

PATIENT
  Age: 89 Year
  Sex: Female

DRUGS (16)
  1. IMBRUVICA [Suspect]
     Active Substance: IBRUTINIB
     Indication: Chronic lymphocytic leukaemia
     Route: 048
     Dates: start: 202307
  2. LIDODERM [Concomitant]
     Active Substance: LIDOCAINE
     Indication: Product used for unknown indication
  3. PRESERVISION EYE DROPS [Concomitant]
     Indication: Product used for unknown indication
  4. AMOXICILLIN [Concomitant]
     Active Substance: AMOXICILLIN
     Indication: Product used for unknown indication
  5. Calcium  Vitamin D3 [Concomitant]
     Indication: Product used for unknown indication
  6. SYSTANE ULTRA [Concomitant]
     Active Substance: POLYETHYLENE GLYCOL 400\PROPYLENE GLYCOL
     Indication: Product used for unknown indication
  7. ACETAMINOPHEN [Concomitant]
     Active Substance: ACETAMINOPHEN
     Indication: Product used for unknown indication
  8. Low Dose 81mg Aspirin [Concomitant]
     Indication: Product used for unknown indication
  9. PLAVIX [Concomitant]
     Active Substance: CLOPIDOGREL BISULFATE
     Indication: Product used for unknown indication
  10. VOLTAREN [Concomitant]
     Active Substance: DICLOFENAC SODIUM
     Indication: Product used for unknown indication
  11. DOXYCYCLINE [Concomitant]
     Active Substance: DOXYCYCLINE
     Indication: Product used for unknown indication
  12. ATORVASTATIN [Concomitant]
     Active Substance: ATORVASTATIN
     Indication: Product used for unknown indication
  13. CIPROFLOXACIN [Concomitant]
     Active Substance: CIPROFLOXACIN
     Indication: Product used for unknown indication
  14. VABYSMO [Concomitant]
     Active Substance: FARICIMAB-SVOA
     Indication: Product used for unknown indication
  15. Turmeric Complex [Concomitant]
     Indication: Product used for unknown indication
  16. FUROSEMIDE [Concomitant]
     Active Substance: FUROSEMIDE
     Indication: Product used for unknown indication

REACTIONS (1)
  - Aortic valve replacement [Recovering/Resolving]

NARRATIVE: CASE EVENT DATE: 20251106
